FAERS Safety Report 4814867-6 (Version None)
Quarter: 2005Q4

REPORT INFORMATION
  Report Type: 
  Country: None (occurrence: None)
  Receive Date: 20051028
  Receipt Date: 20051018
  Transmission Date: 20060501
  Serious: Yes (Other)
  Sender: FDA-Public Use
  Company Number: AU-ROCHE-421881

PATIENT
  Age: 39 Year
  Sex: Male

DRUGS (6)
  1. FUZEON [Suspect]
     Indication: DRUG USE FOR UNKNOWN INDICATION
     Route: 058
     Dates: start: 20051004
  2. RITONAVIR [Concomitant]
     Route: 048
     Dates: start: 20030615
  3. FLUCONAZOLE [Concomitant]
     Dosage: TAKEN DAILY.
     Route: 048
     Dates: start: 20030615
  4. LAMIVUDINE [Concomitant]
     Dosage: TAKEN DAILY.
     Route: 048
     Dates: start: 20030615
  5. TENOFOVIR [Concomitant]
     Dosage: TAKEN DAILY.
     Route: 048
     Dates: start: 20030615
  6. UNSPECIFIED MEDICATION [Concomitant]
     Dosage: REPORTED AS TIPRANOVIR.
     Route: 048
     Dates: start: 20051004

REACTIONS (1)
  - ALOPECIA [None]
